FAERS Safety Report 19566335 (Version 1)
Quarter: 2021Q3

REPORT INFORMATION
  Report Type: Spontaneous
  Country: IT (occurrence: IT)
  Receive Date: 20210714
  Receipt Date: 20210714
  Transmission Date: 20211014
  Serious: Yes (Life-Threatening)
  Sender: FDA-Public Use
  Company Number: IT-PFIZER INC-2021810662

PATIENT
  Age: 56 Year
  Sex: Male
  Weight: 97 kg

DRUGS (1)
  1. CARBOPLATINO PFIZER ITALIA [Suspect]
     Active Substance: CARBOPLATIN
     Indication: CLEAR CELL RENAL CELL CARCINOMA
     Dosage: 850 MG, CYCLIC
     Route: 041
     Dates: start: 20200303, end: 20200303

REACTIONS (4)
  - Hypersensitivity [Recovered/Resolved with Sequelae]
  - Hyperhidrosis [Recovered/Resolved with Sequelae]
  - Cardiac arrest [Recovered/Resolved with Sequelae]
  - Psychomotor hyperactivity [Recovered/Resolved with Sequelae]

NARRATIVE: CASE EVENT DATE: 20200303
